FAERS Safety Report 23523950 (Version 1)
Quarter: 2024Q1

REPORT INFORMATION
  Report Type: Spontaneous
  Country: US (occurrence: US)
  Receive Date: 20240214
  Receipt Date: 20240214
  Transmission Date: 20240409
  Serious: No
  Sender: FDA-Public Use
  Company Number: US-BRISTOL-MYERS SQUIBB COMPANY-2024-019561

PATIENT
  Age: 88 Year
  Sex: Male
  Weight: 73.03 kg

DRUGS (1)
  1. ONUREG [Suspect]
     Active Substance: AZACITIDINE
     Indication: Acute myeloid leukaemia
     Dosage: DAILY FOR 10DAYS
     Route: 048
     Dates: start: 20230701

REACTIONS (2)
  - Product distribution issue [Unknown]
  - Off label use [Unknown]
